FAERS Safety Report 8731378 (Version 2)
Quarter: 2012Q4

REPORT INFORMATION
  Report Type: Report from Study
  Country: DE (occurrence: DE)
  Receive Date: 20120820
  Receipt Date: 20120907
  Transmission Date: 20130627
  Serious: Yes (Hospitalization)
  Sender: FDA-Public Use
  Company Number: DE-MILLENNIUM PHARMACEUTICALS, INC.-2012-05699

PATIENT

DRUGS (7)
  1. VELCADE [Suspect]
     Indication: MULTIPLE MYELOMA
     Dosage: 2.1 mg, UNK
     Route: 042
     Dates: start: 20091012, end: 20091217
  2. FORTECORTIN [Suspect]
     Indication: MULTIPLE MYELOMA
     Dosage: 20 mg, UNK
     Route: 048
     Dates: start: 20090921, end: 20091217
  3. ENDOXAN [Suspect]
     Indication: MULTIPLE MYELOMA
     Dosage: 50 mg, UNK
     Route: 048
     Dates: start: 20090921, end: 20091217
  4. L-THYROX [Concomitant]
     Indication: PROPHYLAXIS
     Dosage: 75 UNK, UNK
     Route: 048
     Dates: start: 1996
  5. CORDANUM [Concomitant]
     Indication: HYPERTENSION
     Dosage: 50 mg, qd
     Route: 048
     Dates: start: 1997
  6. CORDANUM [Concomitant]
     Dosage: 25 mg, qd
     Dates: start: 2008
  7. FAUSTAN [Concomitant]
     Indication: RESTLESSNESS
     Dosage: UNK UNK, prn
     Route: 048
     Dates: start: 2005

REACTIONS (1)
  - Varicella [Recovered/Resolved]
